FAERS Safety Report 10085851 (Version 2)
Quarter: 2014Q2

REPORT INFORMATION
  Report Type: Spontaneous
  Country: US (occurrence: US)
  Receive Date: 20140418
  Receipt Date: 20140509
  Transmission Date: 20141212
  Serious: No
  Sender: FDA-Public Use
  Company Number: US-PFIZER INC-2014108739

PATIENT
  Age: 56 Year
  Sex: Female
  Weight: 68 kg

DRUGS (3)
  1. NEURONTIN [Suspect]
     Indication: PAIN
     Dosage: 800 MG, UNK
     Dates: start: 2006, end: 2007
  2. NEURONTIN [Suspect]
     Indication: MUSCLE SPASMS
  3. CYCLOBENZAPRINE [Suspect]
     Indication: MUSCLE SPASMS
     Dosage: UNK, DAILY

REACTIONS (1)
  - Somnolence [Unknown]
